FAERS Safety Report 6417629-1 (Version None)
Quarter: 2009Q4

REPORT INFORMATION
  Report Type: 
  Country: None (occurrence: None)
  Receive Date: 20091028
  Receipt Date: 20091022
  Transmission Date: 20100525
  Serious: Yes (Other)
  Sender: FDA-Public Use
  Company Number: JP-B.I. PHARMACEUTICALS,INC./RIDGEFIELD-2009-BP-12211NB

PATIENT
  Sex: Male
  Weight: 73 kg

DRUGS (2)
  1. MICARDIS [Suspect]
     Indication: HYPERTENSION
     Dosage: 40 MG
     Route: 048
     Dates: start: 20070205, end: 20080926
  2. INSULIN [Concomitant]
     Route: 058

REACTIONS (1)
  - HEPATIC CIRRHOSIS [None]
